FAERS Safety Report 6712523-0 (Version None)
Quarter: 2010Q2

REPORT INFORMATION
  Report Type: 
  Country: None (occurrence: None)
  Receive Date: 20100506
  Receipt Date: 20100427
  Transmission Date: 20101027
  Serious: Yes (Hospitalization, Other)
  Sender: FDA-Public Use
  Company Number: AU-WYE-G03960609

PATIENT
  Sex: Female

DRUGS (7)
  1. EFFEXOR XR [Suspect]
     Indication: BIPOLAR I DISORDER
     Dosage: 150MG IN THE MORNING
     Route: 048
  2. EFFEXOR XR [Suspect]
     Indication: POST-TRAUMATIC STRESS DISORDER
     Dosage: 150MG IN THE MORNING
     Route: 048
  3. EFFEXOR XR [Suspect]
     Dosage: SLOWLY TITRATED TO 37.5 DAILY, WILL BE DOWN TITRATED TO 37.5MG ALT DAY, THE EVERY 3RD DAY
  4. VALIUM [Concomitant]
  5. SEROQUEL [Suspect]
     Dosage: WEANED OFF ALL HER MEDS
  6. SEROQUEL [Suspect]
     Dosage: UNKNOWN
  7. XANAX [Concomitant]

REACTIONS (10)
  - BLOOD CHROMOGRANIN A INCREASED [None]
  - CONDITION AGGRAVATED [None]
  - DECREASED APPETITE [None]
  - DRUG EFFECT DECREASED [None]
  - DRUG WITHDRAWAL SYNDROME [None]
  - MANIA [None]
  - MOOD SWINGS [None]
  - PSORIASIS [None]
  - UNEVALUABLE EVENT [None]
  - WEIGHT INCREASED [None]
